FAERS Safety Report 10335044 (Version 2)
Quarter: 2014Q3

REPORT INFORMATION
  Report Type: Spontaneous
  Country: VE (occurrence: VE)
  Receive Date: 20140723
  Receipt Date: 20140808
  Transmission Date: 20150326
  Serious: Yes (Death, Hospitalization, Other)
  Sender: FDA-Public Use
  Company Number: VE-ELI_LILLY_AND_COMPANY-VE201407006554

PATIENT
  Age: 60 Year
  Sex: Female

DRUGS (4)
  1. ZYPREXA ZYDIS [Suspect]
     Active Substance: OLANZAPINE
     Dosage: 10 MG, QD
     Route: 048
     Dates: start: 20140709, end: 20140712
  2. ZYPREXA ZYDIS [Suspect]
     Active Substance: OLANZAPINE
     Indication: BIPOLAR DISORDER
     Dosage: 1 DF, UNKNOWN
     Route: 065
  3. ZYPREXA ZYDIS [Suspect]
     Active Substance: OLANZAPINE
     Dosage: 20 MG, QD
     Route: 048
  4. LAMOTRIGINE. [Suspect]
     Active Substance: LAMOTRIGINE
     Indication: PRODUCT USED FOR UNKNOWN INDICATION
     Dosage: 25 MG, QD
     Route: 065
     Dates: start: 20140709, end: 20140712

REACTIONS (5)
  - Sepsis [Fatal]
  - Candida sepsis [Unknown]
  - Coma [Unknown]
  - Haemodynamic instability [Unknown]
  - Intentional product misuse [Unknown]
